FAERS Safety Report 5112805-2 (Version None)
Quarter: 2006Q3

REPORT INFORMATION
  Report Type: 
  Country: None (occurrence: None)
  Receive Date: 20060922
  Receipt Date: 20060816
  Transmission Date: 20061208
  Serious: Yes (Hospitalization)
  Sender: FDA-Public Use
  Company Number: US-PURDUE-USA_2006_0024922

PATIENT
  Sex: Male

DRUGS (4)
  1. OXYIR [Suspect]
     Indication: PAIN
     Dosage: 5 MG, BID
  2. RISPERDAL [Concomitant]
     Indication: BIPOLAR DISORDER
  3. CLONAZEPAM [Concomitant]
  4. DIAZEPAM [Concomitant]

REACTIONS (3)
  - DRUG INEFFECTIVE [None]
  - MENTAL DISORDER [None]
  - PHARMACEUTICAL PRODUCT COMPLAINT [None]
